FAERS Safety Report 7315311-X (Version None)
Quarter: 2011Q1

REPORT INFORMATION
  Report Type: 
  Country: None (occurrence: None)
  Receive Date: 20110225
  Receipt Date: 20110221
  Transmission Date: 20110831
  Serious: Yes (Death)
  Sender: FDA-Public Use
  Company Number: PHHY2011JP11008

PATIENT

DRUGS (1)
  1. CICLOSPORIN [Suspect]
     Indication: RENAL TRANSPLANT

REACTIONS (2)
  - METASTASES TO LUNG [None]
  - GASTRIC CANCER [None]
